FAERS Safety Report 8916832 (Version 1)
Quarter: 2012Q4

REPORT INFORMATION
  Report Type: 
  Country: RU (occurrence: RU)
  Receive Date: 20121120
  Receipt Date: 20121120
  Transmission Date: 20130627
  Serious: Yes (Other)
  Sender: FDA-Public Use
  Company Number: RU-SANOFI-AVENTIS-2012SA020486

PATIENT
  Age: 55 Year
  Sex: Male

DRUGS (2)
  1. MULTAQ [Suspect]
     Indication: ATRIAL FIBRILLATION
     Dosage: 800-600 mg daily
     Route: 048
     Dates: start: 201012
  2. MULTAQ [Suspect]
     Indication: ATRIAL FIBRILLATION
     Route: 048
     Dates: start: 201207

REACTIONS (5)
  - Atrial fibrillation [Unknown]
  - Extrasystoles [Unknown]
  - Tinnitus [Recovering/Resolving]
  - Dizziness [Recovered/Resolved]
  - Underdose [Unknown]
